FAERS Safety Report 5772130-3 (Version None)
Quarter: 2008Q2

REPORT INFORMATION
  Report Type: 
  Country: None (occurrence: None)
  Receive Date: 20080613
  Receipt Date: 20070629
  Transmission Date: 20081010
  Serious: Yes (Other)
  Sender: FDA-Public Use
  Company Number: JP-MERCK-0704USA00219

PATIENT
  Age: 58 Year
  Sex: Male

DRUGS (14)
  1. PEPCID RPD [Suspect]
     Indication: GASTRIC ULCER
     Route: 048
     Dates: start: 20070327, end: 20070329
  2. PEPCID [Suspect]
     Indication: GASTRIC ULCER
     Route: 042
     Dates: start: 20070320, end: 20070320
  3. CEFAZOLIN SODIUM [Concomitant]
     Indication: PNEUMONIA ASPIRATION
     Route: 042
     Dates: start: 20070321, end: 20070324
  4. UNASYN [Concomitant]
     Indication: PNEUMONIA ASPIRATION
     Route: 042
     Dates: start: 20070324, end: 20070329
  5. GLYCEOL [Concomitant]
     Indication: CEREBRAL HAEMORRHAGE
     Route: 042
     Dates: start: 20070321, end: 20070322
  6. CONIEL [Concomitant]
     Indication: HYPERTENSION
     Route: 048
     Dates: start: 20070321, end: 20070326
  7. HERBESSER [Concomitant]
     Indication: HYPERTENSION
     Route: 042
     Dates: start: 20070320, end: 20070321
  8. TAGAMET [Concomitant]
     Indication: GASTRIC ULCER
     Route: 042
     Dates: start: 20070321, end: 20070326
  9. ALEVIATIN [Concomitant]
     Indication: EPILEPSY
     Route: 042
     Dates: start: 20070320, end: 20070321
  10. CERCINE [Concomitant]
     Indication: CONVULSION
     Route: 042
     Dates: start: 20070320, end: 20070321
  11. ADONA [Concomitant]
     Indication: CEREBRAL HAEMORRHAGE
     Route: 042
     Dates: start: 20070320, end: 20070322
  12. TRANSAMIN [Concomitant]
     Indication: CEREBRAL HAEMORRHAGE
     Route: 042
     Dates: start: 20070320, end: 20070322
  13. BIO THREE [Concomitant]
     Route: 048
     Dates: start: 20070321
  14. MARZULENE [Concomitant]
     Route: 048
     Dates: start: 20070321, end: 20070409

REACTIONS (1)
  - RHABDOMYOLYSIS [None]
